FAERS Safety Report 5200047-1 (Version None)
Quarter: 2007Q1

REPORT INFORMATION
  Report Type: 
  Country: None (occurrence: None)
  Receive Date: 20070105
  Receipt Date: 20061228
  Transmission Date: 20070707
  Serious: Yes (Other)
  Sender: FDA-Public Use
  Company Number: US-ELI_LILLY_AND_COMPANY-US200612004651

PATIENT
  Age: 84 Year
  Sex: Female

DRUGS (1)
  1. HUMATROPE [Suspect]
     Indication: HYPOPITUITARISM
     Dosage: UNK, UNKNOWN

REACTIONS (2)
  - PHARMACEUTICAL PRODUCT COMPLAINT [None]
  - TRANSFUSION [None]
